FAERS Safety Report 10248152 (Version 4)
Quarter: 2014Q3

REPORT INFORMATION
  Report Type: Spontaneous
  Country: GB (occurrence: GB)
  Receive Date: 20140619
  Receipt Date: 20140829
  Transmission Date: 20150326
  Serious: Yes (Life-Threatening, Hospitalization)
  Sender: FDA-Public Use
  Company Number: GB-ABBVIE-14P-167-1244899-00

PATIENT
  Age: 27 Year
  Sex: Female

DRUGS (1)
  1. PROSTAP 3 DCS [Suspect]
     Active Substance: LEUPROLIDE ACETATE
     Indication: ENDOMETRIOSIS
     Route: 030
     Dates: start: 20140520

REACTIONS (16)
  - Anaphylactic reaction [Recovered/Resolved]
  - Swelling face [Not Recovered/Not Resolved]
  - Dyspnoea [Recovered/Resolved]
  - Swollen tongue [Recovered/Resolved]
  - Pruritus generalised [Recovered/Resolved]
  - Erythema [Recovered/Resolved]
  - Lip swelling [Recovered/Resolved]
  - Lip pain [Not Recovered/Not Resolved]
  - Wheezing [Recovered/Resolved]
  - Burning sensation [Recovered/Resolved]
  - Paraesthesia [Recovered/Resolved]
  - Hypersensitivity [Not Recovered/Not Resolved]
  - Erythema [Recovered/Resolved]
  - Paraesthesia oral [Not Recovered/Not Resolved]
  - Urticaria [Recovered/Resolved]
  - Circulatory collapse [Recovered/Resolved]

NARRATIVE: CASE EVENT DATE: 20140521
